FAERS Safety Report 5080207-3 (Version None)
Quarter: 2006Q3

REPORT INFORMATION
  Report Type: 
  Country: None (occurrence: None)
  Receive Date: 20060810
  Receipt Date: 20060803
  Transmission Date: 20061208
  Serious: Yes (Death, Hospitalization)
  Sender: FDA-Public Use
  Company Number: 200608IM000450

PATIENT
  Age: 78 Year
  Sex: Female
  Weight: 71.6683 kg

DRUGS (4)
  1. BLINDED THERAPY [Suspect]
     Indication: IDIOPATHIC PULMONARY FIBROSIS
     Dosage: 200  UG, TIW, SUBCUTANEOUS
     Route: 058
     Dates: start: 20050318, end: 20060621
  2. LIPITOR [Concomitant]
  3. VASOTEC [Concomitant]
  4. PAXIL [Concomitant]

REACTIONS (6)
  - ACUTE RESPIRATORY DISTRESS SYNDROME [None]
  - ANAEMIA [None]
  - MULTI-ORGAN FAILURE [None]
  - RESPIRATORY FAILURE [None]
  - SMALL INTESTINAL OBSTRUCTION [None]
  - THERAPY NON-RESPONDER [None]
